FAERS Safety Report 11160866 (Version 1)
Quarter: 2015Q2

REPORT INFORMATION
  Report Type: Spontaneous
  Country: US (occurrence: US)
  Receive Date: 20150604
  Receipt Date: 20150604
  Transmission Date: 20150821
  Serious: No
  Sender: FDA-Public Use
  Company Number: US-SA-2014SA070105

PATIENT
  Age: 72 Year
  Sex: Female

DRUGS (6)
  1. SOLOSTAR [Suspect]
     Active Substance: DEVICE
     Indication: TYPE 2 DIABETES MELLITUS
     Dates: start: 2013
  2. SOLOSTAR [Suspect]
     Active Substance: DEVICE
     Indication: TYPE 2 DIABETES MELLITUS
     Dates: start: 2013
  3. LANTUS SOLOSTAR [Suspect]
     Active Substance: INSULIN GLARGINE
     Indication: TYPE 2 DIABETES MELLITUS
     Dosage: USUALLY TAKES 30 UNITS, BUT IF HER BLOOD SUGAR IS LOW, SHE ONLY TAKES 28 UNITS
     Route: 065
     Dates: start: 2013
  4. LANTUS SOLOSTAR [Suspect]
     Active Substance: INSULIN GLARGINE
     Indication: TYPE 2 DIABETES MELLITUS
     Dosage: USUALLY TAKES 30 UNITS, BUT IF HER BLOOD SUGAR IS LOW, SHE ONLY TAKES 28 UNITS
     Route: 065
     Dates: start: 2013
  5. SOLOSTAR [Suspect]
     Active Substance: DEVICE
     Indication: TYPE 2 DIABETES MELLITUS
     Dates: start: 2013
  6. LANTUS SOLOSTAR [Suspect]
     Active Substance: INSULIN GLARGINE
     Indication: TYPE 2 DIABETES MELLITUS
     Dosage: USUALLY TAKES 30 UNITS, BUT IF HER BLOOD SUGAR IS LOW, SHE ONLY TAKES 28 UNITS
     Route: 065
     Dates: start: 2013

REACTIONS (6)
  - Blood glucose increased [Unknown]
  - Hyperhidrosis [Unknown]
  - Tremor [Unknown]
  - Headache [Unknown]
  - Blood glucose decreased [Unknown]
  - Injection site pain [Unknown]

NARRATIVE: CASE EVENT DATE: 201405
